FAERS Safety Report 12280508 (Version 1)
Quarter: 2016Q2

REPORT INFORMATION
  Report Type: Spontaneous
  Country: US (occurrence: US)
  Receive Date: 20160419
  Receipt Date: 20160419
  Transmission Date: 20160815
  Serious: Yes (Death, Other)
  Sender: FDA-Public Use
  Company Number: US-ALEMBIC PHARMACUETICALS LIMITED-2016SCAL000261

PATIENT

DRUGS (4)
  1. QUETIAPINE. [Concomitant]
     Active Substance: QUETIAPINE
     Indication: BIPOLAR I DISORDER
     Dosage: 300 OR 600 MG, QD AT BEDTIME
     Route: 048
  2. QUETIAPINE. [Concomitant]
     Active Substance: QUETIAPINE
     Indication: BIPOLAR II DISORDER
  3. LITHIUM CARBONATE. [Suspect]
     Active Substance: LITHIUM CARBONATE
     Indication: BIPOLAR I DISORDER
     Dosage: 600-800 MG, QD
  4. LITHIUM CARBONATE. [Suspect]
     Active Substance: LITHIUM CARBONATE
     Indication: BIPOLAR II DISORDER

REACTIONS (18)
  - Upper respiratory tract infection [Unknown]
  - Fatigue [Unknown]
  - Sedation [Unknown]
  - Somnolence [Unknown]
  - Dyspepsia [Unknown]
  - Asthenia [None]
  - Influenza [Unknown]
  - Nausea [Unknown]
  - Anxiety [Unknown]
  - Tremor [Unknown]
  - Dizziness [Unknown]
  - Death [Fatal]
  - Diarrhoea [Unknown]
  - Constipation [Unknown]
  - Insomnia [Unknown]
  - Pollakiuria [Unknown]
  - Dry mouth [Unknown]
  - Headache [Unknown]
